FAERS Safety Report 7909359-1 (Version None)
Quarter: 2011Q4

REPORT INFORMATION
  Report Type: 
  Country: None (occurrence: None)
  Receive Date: 20111111
  Receipt Date: 20111104
  Transmission Date: 20120403
  Serious: Yes (Life-Threatening, Hospitalization)
  Sender: FDA-Public Use
  Company Number: IN-GILEAD-2011-0046338

PATIENT
  Sex: Male

DRUGS (12)
  1. NEVIRAPINE [Suspect]
     Indication: HIV INFECTION
     Dosage: 1 DF, BID
     Dates: start: 20110120
  2. EMTRICITABINE/TENOFOVIR DISOPROXIL FUMARATE [Suspect]
     Indication: HIV INFECTION
     Dosage: 1 DF, QD
     Route: 048
     Dates: start: 20110120
  3. MULTIVITAMINS, COMBINATIONS [Concomitant]
     Indication: ROUTINE HEALTH MAINTENANCE
  4. ESCITALOPRAM [Concomitant]
     Indication: ADJUSTMENT DISORDER
     Dosage: 20 MG, QD
     Route: 048
     Dates: start: 20110830, end: 20110902
  5. DIPHENHYDRAMINE HCL [Concomitant]
     Indication: PRODUCTIVE COUGH
     Dosage: 1 DF, TID
     Route: 048
     Dates: start: 20110928
  6. ACETAMINOPHEN [Concomitant]
     Indication: HEAD DISCOMFORT
     Dosage: 500 MG, BID
     Route: 048
     Dates: start: 20110808
  7. MIRTAZAPINE [Concomitant]
     Indication: ADJUSTMENT DISORDER
     Dosage: 7.5 MG, QD
     Route: 048
     Dates: start: 20110830, end: 20110902
  8. AUTRIN                             /00622901/ [Concomitant]
     Indication: PARAESTHESIA
     Dosage: 1 DF, QD
     Route: 048
  9. DICLOFENAC SODIUM [Concomitant]
     Indication: BACK PAIN
     Dosage: 50 MG, BID
     Route: 048
     Dates: start: 20110830
  10. RANITIDINE HYDROCHLORIDE [Concomitant]
     Indication: DYSPEPSIA
     Dosage: 150 MG, BID
     Route: 048
     Dates: start: 20110830
  11. AMOXICILLIN [Concomitant]
     Indication: PRODUCTIVE COUGH
     Dosage: 500 MG, TID
     Dates: start: 20110928
  12. CETIRIZINE HCL [Concomitant]
     Indication: PRODUCTIVE COUGH
     Dosage: 10 MG, QD
     Route: 048
     Dates: start: 20110928

REACTIONS (1)
  - SUICIDE ATTEMPT [None]
